FAERS Safety Report 5395441-2 (Version None)
Quarter: 2007Q3

REPORT INFORMATION
  Report Type: 
  Country: None (occurrence: None)
  Receive Date: 20070724
  Receipt Date: 20070717
  Transmission Date: 20080115
  Serious: Yes (Disabling)
  Sender: FDA-Public Use
  Company Number: A0655796A

PATIENT
  Age: 58 Year
  Sex: Female
  Weight: 130 kg

DRUGS (11)
  1. AVANDIA [Suspect]
     Indication: DRUG USE FOR UNKNOWN INDICATION
     Route: 048
     Dates: end: 20070101
  2. DIOVAN HCT [Concomitant]
     Route: 048
  3. LEVOXYL [Concomitant]
     Dosage: .05MG PER DAY
     Route: 048
  4. LASIX [Concomitant]
     Dosage: 40MG PER DAY
     Route: 048
  5. K-DUR 10 [Concomitant]
     Dosage: 40MEQ PER DAY
     Route: 048
  6. NEURONTIN [Concomitant]
     Dosage: 300MG THREE TIMES PER DAY
     Route: 048
  7. CELEBREX [Concomitant]
     Dosage: 200MG PER DAY
     Route: 048
  8. FLONASE [Concomitant]
  9. GLIPIZIDE [Concomitant]
  10. METFORMIN HCL [Concomitant]
  11. BYETTA [Concomitant]

REACTIONS (14)
  - ARTHRALGIA [None]
  - BACK PAIN [None]
  - DISTURBANCE IN ATTENTION [None]
  - DYSPNOEA [None]
  - ELECTROCARDIOGRAM ABNORMAL [None]
  - FATIGUE [None]
  - FLUID RETENTION [None]
  - MOBILITY DECREASED [None]
  - MYOCARDIAL ISCHAEMIA [None]
  - OEDEMA [None]
  - PAIN IN EXTREMITY [None]
  - SWELLING [None]
  - WEIGHT INCREASED [None]
  - WEIGHT LOSS POOR [None]
